FAERS Safety Report 8773845 (Version 2)
Quarter: 2012Q4

REPORT INFORMATION
  Report Type: 
  Country: JP (occurrence: JP)
  Receive Date: 20120907
  Receipt Date: 20121004
  Transmission Date: 20130627
  Serious: Yes (Other)
  Sender: FDA-Public Use
  Company Number: JP-JNJFOC-20120902275

PATIENT
  Age: 78 Year
  Sex: Male
  Weight: 68 kg

DRUGS (8)
  1. XARELTO [Suspect]
     Indication: PRODUCT USED FOR UNKNOWN INDICATION
     Route: 048
     Dates: start: 20120523, end: 20120620
  2. RENIVACE [Concomitant]
     Dates: start: 201201
  3. LUPRAC [Concomitant]
     Route: 048
     Dates: start: 201201, end: 20120620
  4. BAYASPIRIN [Concomitant]
     Route: 048
     Dates: start: 201201
  5. PLAVIX [Concomitant]
     Route: 048
     Dates: start: 201201
  6. TAKEPRON [Concomitant]
     Route: 048
     Dates: start: 201201
  7. MAINTATE [Concomitant]
     Route: 048
     Dates: start: 201201
  8. ALOSITOL [Concomitant]
     Route: 048
     Dates: start: 201201

REACTIONS (1)
  - Cardiac failure [Recovering/Resolving]
